FAERS Safety Report 8850813 (Version 1)
Quarter: 2012Q4

REPORT INFORMATION
  Report Type: 
  Country: US (occurrence: US)
  Receive Date: 20121019
  Receipt Date: 20121019
  Transmission Date: 20130627
  Serious: Yes (Hospitalization)
  Sender: FDA-Public Use
  Company Number: US-BRISTOL-MYERS SQUIBB COMPANY-17026360

PATIENT
  Age: 61 Year
  Sex: Male

DRUGS (13)
  1. CISPLATIN [Suspect]
     Indication: LUNG SQUAMOUS CELL CARCINOMA STAGE UNSPECIFIED
     Dosage: On day 1
     Route: 042
  2. ETOPOSIDE [Interacting]
     Indication: LUNG SQUAMOUS CELL CARCINOMA STAGE UNSPECIFIED
     Dosage: On days 1-5
     Route: 042
  3. ECHINACEA [Interacting]
  4. LAETRILE [Interacting]
  5. OMEPRAZOLE [Concomitant]
  6. ENALAPRIL [Concomitant]
  7. HYDROCODONE + ACETAMINOPHEN [Concomitant]
  8. PROCHLORPERAZINE [Concomitant]
  9. ONDANSETRON [Concomitant]
  10. VITAMIN B12 [Concomitant]
  11. VITAMIN E [Concomitant]
  12. VITAMIN D [Concomitant]
  13. VITAMIN C [Concomitant]

REACTIONS (3)
  - Thrombocytopenia [Recovered/Resolved]
  - Febrile neutropenia [Recovered/Resolved]
  - Drug interaction [Unknown]
